FAERS Safety Report 6213114-0 (Version None)
Quarter: 2009Q2

REPORT INFORMATION
  Report Type: 
  Country: None (occurrence: None)
  Receive Date: 20090603
  Receipt Date: 20090525
  Transmission Date: 20091009
  Serious: Yes (Hospitalization)
  Sender: FDA-Public Use
  Company Number: B0575388A

PATIENT
  Sex: Female

DRUGS (1)
  1. TRIZIVIR [Suspect]
     Indication: HIV INFECTION
     Dosage: 1UNIT TWICE PER DAY
     Route: 048
     Dates: start: 20000101, end: 20090311

REACTIONS (7)
  - ANAEMIA MACROCYTIC [None]
  - APLASIA PURE RED CELL [None]
  - ASTHENIA [None]
  - DYSPNOEA [None]
  - HEADACHE [None]
  - PALLOR [None]
  - PALPITATIONS [None]
